FAERS Safety Report 9994917 (Version 2)
Quarter: 2014Q3

REPORT INFORMATION
  Report Type: Spontaneous
  Country: CH (occurrence: None)
  Receive Date: 20140306
  Receipt Date: 20140701
  Transmission Date: 20150326
  Serious: Yes (Hospitalization)
  Sender: FDA-Public Use
  Company Number: 20130768

PATIENT
  Age: 66 Year
  Sex: Male

DRUGS (1)
  1. FERINJECT [Suspect]
     Active Substance: FERRIC CARBOXYMALTOSE
     Indication: IRON DEFICIENCY ANAEMIA
     Dosage: 1000 MG..
     Route: 042
     Dates: start: 20120701, end: 20120730

REACTIONS (7)
  - Hypophosphataemia [None]
  - Malaise [None]
  - Decreased appetite [None]
  - Abdominal pain upper [None]
  - Asthenia [None]
  - Vomiting [None]
  - Hypocalcaemia [None]

NARRATIVE: CASE EVENT DATE: 20120701
